FAERS Safety Report 9909374 (Version 1)
Quarter: 2014Q1

REPORT INFORMATION
  Report Type: Spontaneous
  Country: US (occurrence: None)
  Receive Date: 20140214
  Receipt Date: 20140214
  Transmission Date: 20141002
  Serious: No
  Sender: FDA-Public Use
  Company Number: None

PATIENT
  Age: 54 Year
  Sex: Male

DRUGS (6)
  1. BENAZEPRIL [Suspect]
     Route: 048
  2. DOCUSATE [Concomitant]
  3. AMLODIPINE [Concomitant]
  4. PREDNISONE [Concomitant]
  5. CEPHALEXIN [Concomitant]
  6. CLINDAMYCIN [Concomitant]

REACTIONS (1)
  - Oedema mouth [None]
